FAERS Safety Report 9800959 (Version 2)
Quarter: 2014Q1

REPORT INFORMATION
  Report Type: Report from Study
  Country: JP (occurrence: JP)
  Receive Date: 20140107
  Receipt Date: 20140107
  Transmission Date: 20141002
  Serious: Yes (Other)
  Sender: FDA-Public Use
  Company Number: JP-BRISTOL-MYERS SQUIBB COMPANY-19901859

PATIENT
  Age: 83 Year
  Sex: Male
  Weight: 55.4 kg

DRUGS (3)
  1. SPRYCEL [Suspect]
     Indication: CHRONIC MYELOID LEUKAEMIA
     Dosage: 70MG:30JUN09-21JUL09?70MG:28JUL09-10SEP09?50MG:15OCT09 -ONG
     Route: 048
     Dates: start: 20090630
  2. ZYLORIC [Concomitant]
     Dosage: INITIAL DOSE:STOP DATE 10NOV2009(TABLET)?2ND DOSE:START DATE 11NOV2009(ORAL)(TABLET)
     Route: 048
  3. POTASSIUM ASPARTATE [Concomitant]
     Route: 048
     Dates: start: 20090918, end: 20090924

REACTIONS (4)
  - Gamma-glutamyltransferase increased [Not Recovered/Not Resolved]
  - Aspartate aminotransferase increased [Recovered/Resolved]
  - Alanine aminotransferase increased [Recovered/Resolved]
  - Blood alkaline phosphatase increased [Recovered/Resolved]
